FAERS Safety Report 6956163-7 (Version None)
Quarter: 2010Q3

REPORT INFORMATION
  Report Type: 
  Country: None (occurrence: None)
  Receive Date: 20100830
  Receipt Date: 20100817
  Transmission Date: 20110219
  Serious: Yes (Other)
  Sender: FDA-Public Use
  Company Number: PHHY2010US54579

PATIENT
  Sex: Female

DRUGS (1)
  1. ENABLEX [Suspect]
     Route: 048

REACTIONS (2)
  - BLOOD GLUCOSE INCREASED [None]
  - CONFUSIONAL STATE [None]
